FAERS Safety Report 10232706 (Version 1)
Quarter: 2014Q2

REPORT INFORMATION
  Report Type: Spontaneous
  Country: DE (occurrence: DE)
  Receive Date: 20140612
  Receipt Date: 20140612
  Transmission Date: 20141212
  Serious: Yes (Other)
  Sender: FDA-Public Use
  Company Number: DE-HORIZON-PRE-0081-2014

PATIENT
  Age: 74 Year
  Sex: Female

DRUGS (1)
  1. LODOTRA 5 MG [Suspect]
     Indication: DISLOCATION OF VERTEBRA
     Dates: start: 201005

REACTIONS (8)
  - Pulmonary embolism [Unknown]
  - Scapula fracture [Unknown]
  - Meniscus injury [Unknown]
  - Joint instability [Unknown]
  - Immune system disorder [Unknown]
  - Impaired healing [Unknown]
  - Off label use [Unknown]
  - Meniscus injury [None]
